FAERS Safety Report 9304157 (Version 1)
Quarter: 2013Q2

REPORT INFORMATION
  Report Type: Spontaneous
  Country: US (occurrence: US)
  Receive Date: 20130522
  Receipt Date: 20130522
  Transmission Date: 20140414
  Serious: Yes (Other)
  Sender: FDA-Public Use
  Company Number: US-TEVA-405491USA

PATIENT
  Age: 50 Year
  Sex: Male
  Weight: 140.29 kg

DRUGS (5)
  1. PROAIR HFA [Suspect]
     Indication: BRONCHOSPASM
     Route: 055
     Dates: start: 2012
  2. PROAIR HFA [Suspect]
     Indication: CHRONIC OBSTRUCTIVE PULMONARY DISEASE
  3. QVAR [Concomitant]
     Indication: CHRONIC OBSTRUCTIVE PULMONARY DISEASE
     Dosage: 2 DOSAGE FORMS DAILY;
     Dates: start: 2012
  4. LISINOPRIOL/FLUID PILL [Concomitant]
     Indication: HYPERTENSION
     Dosage: ^20/25^
     Route: 048
  5. NORVASC [Concomitant]
     Indication: HYPERTENSION
     Dosage: 10 MILLIGRAM DAILY;
     Route: 048

REACTIONS (5)
  - Pneumonia [Unknown]
  - Dyspnoea [Recovered/Resolved]
  - Bronchitis [Unknown]
  - Nasopharyngitis [Unknown]
  - Drug dose omission [Unknown]
